FAERS Safety Report 14121774 (Version 1)
Quarter: 2017Q4

REPORT INFORMATION
  Report Type: Report from Study
  Country: CH (occurrence: CH)
  Receive Date: 20171024
  Receipt Date: 20171024
  Transmission Date: 20180321
  Serious: Yes (Other)
  Sender: FDA-Public Use
  Company Number: CH-ASTRAZENECA-2016SF19045

PATIENT
  Age: 71 Year
  Sex: Male

DRUGS (6)
  1. ACETYLSALICYLIC ACID [Suspect]
     Active Substance: ASPIRIN
     Indication: ACUTE CORONARY SYNDROME
     Dosage: MAINTENENECE THERAPY WHICH STARTED PRIOR TO INDEX PROCEDURE.
     Route: 048
  2. BELOCZOK [Concomitant]
  3. EZETROL [Concomitant]
     Active Substance: EZETIMIBE
  4. AMLODIPIN [Concomitant]
     Active Substance: AMLODIPINE BESYLATE
  5. PRAVASTATIN. [Concomitant]
     Active Substance: PRAVASTATIN
  6. TICAGRELOR. [Suspect]
     Active Substance: TICAGRELOR
     Indication: ACUTE CORONARY SYNDROME
     Route: 048

REACTIONS (4)
  - Craniocerebral injury [Recovered/Resolved]
  - Spinal fracture [Recovered/Resolved]
  - Road traffic accident [Recovered/Resolved]
  - Vision blurred [Recovered/Resolved]
